FAERS Safety Report 18212544 (Version 1)
Quarter: 2020Q3

REPORT INFORMATION
  Report Type: Spontaneous
  Country: US (occurrence: US)
  Receive Date: 20200828
  Receipt Date: 20200828
  Transmission Date: 20201103
  Serious: No
  Sender: FDA-Public Use
  Company Number: None

PATIENT
  Age: 62 Year
  Sex: Female
  Weight: 88.65 kg

DRUGS (15)
  1. PREDNISONE 10MG [Concomitant]
     Active Substance: PREDNISONE
  2. FASLODEX [Concomitant]
     Active Substance: FULVESTRANT
  3. MORPHINE SULFATE ER 15NG [Concomitant]
  4. FENTANYL 25MCG/HR [Concomitant]
  5. IBUPROFEN 200MG [Concomitant]
     Active Substance: IBUPROFEN
  6. CITALOPRAM [Concomitant]
     Active Substance: CITALOPRAM HYDROBROMIDE
  7. GABAPENTIN 600MG [Concomitant]
     Active Substance: GABAPENTIN
  8. REXULTI [Concomitant]
     Active Substance: BREXPIPRAZOLE
  9. LOVENOX 100MG/ML [Concomitant]
  10. LORAZEPAM 1MG [Concomitant]
     Active Substance: LORAZEPAM
  11. PROCHLORPERAZINE 10MG [Concomitant]
  12. ZOLPIDEM [Concomitant]
     Active Substance: ZOLPIDEM TARTRATE
  13. IBRANCE [Suspect]
     Active Substance: PALBOCICLIB
     Indication: BREAST CANCER
     Route: 048
     Dates: start: 20170330
  14. TYLENOL WITH CODEINE #3 300?30MG [Concomitant]
  15. TRAZODONE [Concomitant]
     Active Substance: TRAZODONE HYDROCHLORIDE

REACTIONS (7)
  - Therapy interrupted [None]
  - Asthenia [None]
  - Pain [None]
  - Nausea [None]
  - Fatigue [None]
  - Dizziness [None]
  - Loss of personal independence in daily activities [None]

NARRATIVE: CASE EVENT DATE: 20200821
